FAERS Safety Report 11780862 (Version 1)
Quarter: 2015Q4

REPORT INFORMATION
  Report Type: Spontaneous
  Country: US (occurrence: US)
  Receive Date: 20151126
  Receipt Date: 20151126
  Transmission Date: 20160305
  Serious: No
  Sender: FDA-Public Use
  Company Number: US-HOSPIRA-2935922

PATIENT
  Age: 48 Year
  Sex: Female
  Weight: 66 kg

DRUGS (5)
  1. CORTISONE [Suspect]
     Active Substance: CORTISONE\HYDROCORTISONE
     Indication: MUSCULOSKELETAL PAIN
     Dosage: ONCE
     Dates: start: 20150617
  2. HCTZ [Concomitant]
     Active Substance: HYDROCHLOROTHIAZIDE
     Indication: HYPERTENSION
     Route: 048
  3. LIDOCAINE HYDROCHLORIDE. [Suspect]
     Active Substance: LIDOCAINE HYDROCHLORIDE
     Indication: MUSCULOSKELETAL PAIN
     Dosage: ONCE
     Route: 042
     Dates: start: 20150617
  4. LISINOPRIL. [Concomitant]
     Active Substance: LISINOPRIL
     Indication: HYPERTENSION
     Route: 048
  5. BUPIVACAINE HYDROCHLORIDE. [Suspect]
     Active Substance: BUPIVACAINE HYDROCHLORIDE
     Indication: MUSCULOSKELETAL PAIN
     Dosage: ONCE
     Route: 042
     Dates: start: 20150617

REACTIONS (1)
  - Urticaria [Recovered/Resolved]

NARRATIVE: CASE EVENT DATE: 201506
